FAERS Safety Report 13880901 (Version 1)
Quarter: 2017Q3

REPORT INFORMATION
  Report Type: Spontaneous
  Country: CH (occurrence: CH)
  Receive Date: 20170818
  Receipt Date: 20170818
  Transmission Date: 20171127
  Serious: Yes (Hospitalization)
  Sender: FDA-Public Use
  Company Number: CH-JNJFOC-20170814959

PATIENT
  Age: 64 Year
  Sex: Male

DRUGS (11)
  1. TRIATEC [Concomitant]
     Active Substance: RAMIPRIL
     Route: 065
  2. ALDACTONE [Concomitant]
     Active Substance: SPIRONOLACTONE
     Route: 065
  3. XARELTO [Suspect]
     Active Substance: RIVAROXABAN
     Indication: PRODUCT USED FOR UNKNOWN INDICATION
     Route: 048
     Dates: start: 20170524, end: 20170605
  4. ASPIRIN. [Suspect]
     Active Substance: ASPIRIN
     Indication: PRODUCT USED FOR UNKNOWN INDICATION
     Route: 065
     Dates: start: 20170608
  5. PLAVIX [Suspect]
     Active Substance: CLOPIDOGREL BISULFATE
     Indication: PRODUCT USED FOR UNKNOWN INDICATION
     Route: 065
     Dates: start: 20170314, end: 20170612
  6. TEMESTA [Concomitant]
     Active Substance: LORAZEPAM
     Route: 065
  7. TOREM [Concomitant]
     Active Substance: TORSEMIDE
     Route: 065
  8. DILATREND [Concomitant]
     Active Substance: CARVEDILOL
     Route: 065
  9. KCL [Concomitant]
     Active Substance: POTASSIUM CHLORIDE
     Route: 065
  10. DUPHALAC [Concomitant]
     Active Substance: LACTULOSE
     Route: 065
  11. ULTIBRO [Concomitant]
     Active Substance: GLYCOPYRRONIUM\INDACATEROL
     Route: 065

REACTIONS (3)
  - Contraindicated product administered [Recovered/Resolved]
  - Upper gastrointestinal haemorrhage [Recovered/Resolved]
  - Lower gastrointestinal haemorrhage [Recovered/Resolved]

NARRATIVE: CASE EVENT DATE: 20170524
